FAERS Safety Report 5869607-9 (Version None)
Quarter: 2008Q3

REPORT INFORMATION
  Report Type: 
  Country: None (occurrence: None)
  Receive Date: 20080904
  Receipt Date: 20080630
  Transmission Date: 20090109
  Serious: No
  Sender: FDA-Public Use
  Company Number: US-KINGPHARMUSA00001-K200800764

PATIENT

DRUGS (1)
  1. CYTOMEL [Suspect]
     Dosage: UNK, UNK
     Route: 065

REACTIONS (2)
  - EYE SWELLING [None]
  - GASTROINTESTINAL DISORDER [None]
